FAERS Safety Report 9085565 (Version 1)
Quarter: 2013Q1

REPORT INFORMATION
  Report Type: Report from Study
  Country: US (occurrence: US)
  Receive Date: 20130131
  Receipt Date: 20130131
  Transmission Date: 20140127
  Serious: No
  Sender: FDA-Public Use
  Company Number: US-ABBOTT-12P-163-1003901-00

PATIENT
  Age: 85 Year
  Sex: Female

DRUGS (11)
  1. HUMIRA [Suspect]
     Indication: RHEUMATOID ARTHRITIS
     Dates: start: 201208
  2. PROCRIT [Concomitant]
     Indication: MYELODYSPLASTIC SYNDROME
  3. CITALOPRAM [Concomitant]
     Indication: DEATH OF COMPANION
     Dosage: 20MG DAILY
  4. AMBIEN [Concomitant]
     Indication: INSOMNIA
     Dosage: 10MG DAILY
  5. SIMVASTATIN [Concomitant]
     Indication: BLOOD CHOLESTEROL INCREASED
     Dosage: 40MG DAILY
  6. SYNTHROID [Concomitant]
     Indication: HYPOTHYROIDISM
     Dosage: 100MCG DAILY
  7. VITAMIN C [Concomitant]
     Indication: PRODUCT USED FOR UNKNOWN INDICATION
     Dosage: 500MG DAILY
  8. FISH OIL [Concomitant]
     Indication: PRODUCT USED FOR UNKNOWN INDICATION
     Dosage: 1000MG DAILY
  9. VITAMIN D [Concomitant]
     Indication: PRODUCT USED FOR UNKNOWN INDICATION
     Dosage: 1 TAB DAILY
  10. CALCIUM [Concomitant]
     Indication: PRODUCT USED FOR UNKNOWN INDICATION
     Dosage: 600MG DAILY
  11. CENTRUM SILVER [Concomitant]
     Indication: PRODUCT USED FOR UNKNOWN INDICATION
     Dosage: 1 TAB DAILY

REACTIONS (1)
  - Urinary tract infection [Recovering/Resolving]
